FAERS Safety Report 20043061 (Version 1)
Quarter: 2021Q4

REPORT INFORMATION
  Report Type: Spontaneous
  Country: FR (occurrence: FR)
  Receive Date: 20211108
  Receipt Date: 20211108
  Transmission Date: 20220304
  Serious: Yes (Hospitalization)
  Sender: FDA-Public Use
  Company Number: None

PATIENT
  Age: 60 Year
  Sex: Male
  Weight: 138 kg

DRUGS (10)
  1. DESLORATADINE [Suspect]
     Active Substance: DESLORATADINE
     Indication: Pruritus
     Dosage: 5 MILLIGRAM, QD
     Route: 048
     Dates: start: 20211007, end: 20211010
  2. OMOCONAZOLE NITRATE [Suspect]
     Active Substance: OMOCONAZOLE NITRATE
     Indication: Fungal infection
     Dosage: 1 DOSAGE FORM, QD
     Route: 003
     Dates: start: 20211009, end: 20211009
  3. FLUCONAZOLE [Suspect]
     Active Substance: FLUCONAZOLE
     Indication: Fungal infection
     Dosage: 100 MILLIGRAM, QD
     Route: 048
     Dates: start: 20211007, end: 20211010
  4. MICONAZOLE [Suspect]
     Active Substance: MICONAZOLE
     Indication: Fungal infection
     Dosage: 2 DOSAGE FORM, QD
     Route: 003
     Dates: start: 20211007, end: 20211010
  5. INDAPAMIDE [Concomitant]
     Active Substance: INDAPAMIDE
     Dosage: UNK
  6. XARELTO [Concomitant]
     Active Substance: RIVAROXABAN
     Dosage: UNK
  7. BISOPROLOL FUMARATE [Concomitant]
     Active Substance: BISOPROLOL FUMARATE
     Dosage: UNK
  8. PERINDOPRIL [Concomitant]
     Active Substance: PERINDOPRIL
     Dosage: UNK
  9. ROSUVASTATIN [Concomitant]
     Active Substance: ROSUVASTATIN
     Dosage: UNK
  10. AMIODARONE [Concomitant]
     Active Substance: AMIODARONE
     Dosage: UNK

REACTIONS (3)
  - Rash pustular [Recovering/Resolving]
  - Rash erythematous [Recovering/Resolving]
  - Oedema genital [Not Recovered/Not Resolved]

NARRATIVE: CASE EVENT DATE: 20211011
